FAERS Safety Report 12342889 (Version 10)
Quarter: 2018Q1

REPORT INFORMATION
  Report Type: Spontaneous
  Country: FR (occurrence: FR)
  Receive Date: 20160506
  Receipt Date: 20180307
  Transmission Date: 20180508
  Serious: Yes (Hospitalization)
  Sender: FDA-Public Use
  Company Number: FR-BIOGEN-2016BI00232831

PATIENT
  Age: 25 Year
  Sex: Female

DRUGS (5)
  1. TYSABRI [Suspect]
     Active Substance: NATALIZUMAB
     Indication: MULTIPLE SCLEROSIS
     Route: 065
  2. BACLOFEN. [Interacting]
     Active Substance: BACLOFEN
     Indication: PRODUCT USED FOR UNKNOWN INDICATION
     Route: 065
  3. FAMPYRA [Suspect]
     Active Substance: DALFAMPRIDINE
     Indication: GAIT DISTURBANCE
     Route: 048
     Dates: start: 20130524, end: 20160316
  4. FAMPYRA [Suspect]
     Active Substance: DALFAMPRIDINE
     Route: 065
  5. TAMSULOSIN (JOSIR) [Concomitant]
     Indication: SECONDARY PROGRESSIVE MULTIPLE SCLEROSIS
     Route: 065

REACTIONS (4)
  - Drug interaction [Unknown]
  - Generalised tonic-clonic seizure [Unknown]
  - Status epilepticus [Recovered/Resolved]
  - Myoclonus [Unknown]

NARRATIVE: CASE EVENT DATE: 20160316
